FAERS Safety Report 6695372-1 (Version None)
Quarter: 2010Q2

REPORT INFORMATION
  Report Type: 
  Country: None (occurrence: None)
  Receive Date: 20100423
  Receipt Date: 20100423
  Transmission Date: 20101027
  Serious: Yes (Other)
  Sender: FDA-Public Use
  Company Number: None

PATIENT
  Age: 13 Year
  Sex: Male

DRUGS (2)
  1. FLUOXETINE [Suspect]
     Indication: MAJOR DEPRESSION
     Dosage: 20MG QAM PO
     Route: 048
     Dates: start: 20100308, end: 20100312
  2. ABILIFY [Suspect]
     Indication: MAJOR DEPRESSION
     Dosage: 15MG HS PO
     Route: 048
     Dates: start: 20100309, end: 20100312

REACTIONS (1)
  - NUCHAL RIGIDITY [None]
